FAERS Safety Report 5389258-2 (Version None)
Quarter: 2007Q3

REPORT INFORMATION
  Report Type: 
  Country: None (occurrence: None)
  Receive Date: 20070717
  Receipt Date: 20070713
  Transmission Date: 20080115
  Serious: Yes (Other)
  Sender: FDA-Public Use
  Company Number: B0479014A

PATIENT
  Age: 23 Year
  Sex: Female

DRUGS (4)
  1. VALTREX [Suspect]
     Indication: PROPHYLAXIS
     Dosage: 500MG PER DAY
     Route: 048
     Dates: start: 20070601, end: 20070708
  2. THYRADIN [Concomitant]
     Route: 048
  3. ARASENA-A [Concomitant]
     Route: 065
  4. CHINESE MEDICINE [Concomitant]
     Route: 048

REACTIONS (1)
  - AGRANULOCYTOSIS [None]
